FAERS Safety Report 24449842 (Version 1)
Quarter: 2024Q4

REPORT INFORMATION
  Report Type: Report from Study
  Country: US (occurrence: US)
  Receive Date: 20241017
  Receipt Date: 20241017
  Transmission Date: 20250114
  Serious: Yes (Death)
  Sender: BAYER HEALTHCARE PHARMACEUTICALS INC.
  Company Number: US-BAYER-2024A147037

PATIENT
  Age: 82 Year
  Sex: Female
  Weight: 88.435 kg

DRUGS (25)
  1. ADEMPAS [Suspect]
     Active Substance: RIOCIGUAT
     Indication: Pulmonary arterial hypertension
     Dosage: UNK
     Dates: start: 20240221
  2. ADEMPAS [Suspect]
     Active Substance: RIOCIGUAT
     Indication: Pulmonary arterial hypertension
     Dosage: 2 MG, TID
     Route: 048
  3. ORENITRAM [Concomitant]
     Active Substance: TREPROSTINIL
     Dosage: UNK
     Dates: end: 20240702
  4. DULOXETINE HYDROCHLORIDE [Concomitant]
     Active Substance: DULOXETINE HYDROCHLORIDE
  5. ALBUTEROL\IPRATROPIUM [Concomitant]
     Active Substance: ALBUTEROL\IPRATROPIUM
  6. VITAMINS [Concomitant]
     Active Substance: VITAMINS
  7. POTASSIUM CHLORIDE [Concomitant]
     Active Substance: POTASSIUM CHLORIDE
  8. SIMVASTATIN [Concomitant]
     Active Substance: SIMVASTATIN
  9. SPIRIVA [Concomitant]
     Active Substance: TIOTROPIUM BROMIDE MONOHYDRATE
  10. TRAZODONE HCL [Concomitant]
     Active Substance: TRAZODONE HYDROCHLORIDE
  11. KETOCONAZOLE [Concomitant]
     Active Substance: KETOCONAZOLE
  12. ALBUTEROL SULFATE [Concomitant]
     Active Substance: ALBUTEROL SULFATE
  13. ALLOPURINOL [Concomitant]
     Active Substance: ALLOPURINOL
  14. ELIQUIS [Concomitant]
     Active Substance: APIXABAN
  15. BUSPIRONE HCL [Concomitant]
     Active Substance: BUSPIRONE HYDROCHLORIDE
  16. METOLAZONE [Concomitant]
     Active Substance: METOLAZONE
  17. METHADONE HYDROCHLORIDE [Concomitant]
     Active Substance: METHADONE HYDROCHLORIDE
  18. METOPROLOL SUCCINATE [Concomitant]
     Active Substance: METOPROLOL SUCCINATE
  19. ASPIRIN [Concomitant]
     Active Substance: ASPIRIN
  20. COLCHICINE [Concomitant]
     Active Substance: COLCHICINE
  21. OXYGEN [Concomitant]
     Active Substance: OXYGEN
  22. CETIRIZINE HCL [Concomitant]
     Active Substance: CETIRIZINE HYDROCHLORIDE
  23. GABAPENTIN [Concomitant]
     Active Substance: GABAPENTIN
  24. VITAMIN D3 [Concomitant]
     Active Substance: CHOLECALCIFEROL
  25. TORSEMIDE [Concomitant]
     Active Substance: TORSEMIDE

REACTIONS (1)
  - Death [Fatal]

NARRATIVE: CASE EVENT DATE: 20241011
